FAERS Safety Report 4466277-1 (Version None)
Quarter: 2004Q3

REPORT INFORMATION
  Report Type: 
  Country: None (occurrence: None)
  Receive Date: 20040930
  Receipt Date: 20040915
  Transmission Date: 20050211
  Serious: Yes (Hospitalization, Other)
  Sender: FDA-Public Use
  Company Number: 02/02038-CDS

PATIENT
  Age: 61 Year
  Sex: Female
  Weight: 70 kg

DRUGS (14)
  1. CAMPATH [Suspect]
     Indication: CHRONIC LYMPHOCYTIC LEUKAEMIA
     Dosage: 30 MG/ 3X PER WEEK, INTRAVENOUS
     Route: 042
     Dates: start: 20020424, end: 20020517
  2. FLUDARA [Suspect]
     Indication: CHRONIC LYMPHOCYTIC LEUKAEMIA
     Dosage: 30 MG/M2, 6 CYCLES DAY 1-3, INTRAVENOUS
     Route: 042
  3. DIFLUCAN [Suspect]
     Indication: PYREXIA
     Dosage: 200 MG
     Dates: start: 20020423
  4. PENTAZOL(PENTETRAZOL) [Suspect]
     Dosage: 40 MG
     Dates: start: 20020424
  5. VALCYTE [Suspect]
     Indication: PROPHYLAXIS
     Dosage: 900 MG, ORAL
     Route: 048
  6. CYCLOPHOSPHAMIDE [Concomitant]
  7. LITHIUM CARBONATE [Concomitant]
  8. SULFAMETHOXAZOLE AND TRIMETHOPRIM [Concomitant]
  9. VALTREX [Concomitant]
  10. DIPHENHYDRAMINE (DIPHENHYDRAMINE) [Concomitant]
  11. PARACETAMOL [Concomitant]
  12. FAMCICLOVIR (FAMCICLOVIR) [Concomitant]
  13. BUSPAN (HYOSCINE BUTYLBROMIDE) [Concomitant]
  14. PREDNISONE [Concomitant]

REACTIONS (12)
  - ANAEMIA [None]
  - ASTHENIA [None]
  - CHILLS [None]
  - DIARRHOEA [None]
  - FLATULENCE [None]
  - GASTRITIS EROSIVE [None]
  - GASTROENTERITIS [None]
  - GASTROOESOPHAGEAL REFLUX DISEASE [None]
  - NEUTROPENIA [None]
  - PCO2 INCREASED [None]
  - PNEUMONIA CYTOMEGALOVIRAL [None]
  - THROMBOCYTOPENIA [None]
